FAERS Safety Report 13045776 (Version 1)
Quarter: 2016Q4

REPORT INFORMATION
  Report Type: Spontaneous
  Country: US (occurrence: US)
  Receive Date: 20161220
  Receipt Date: 20161220
  Transmission Date: 20170207
  Serious: No
  Sender: FDA-Public Use
  Company Number: None

PATIENT
  Age: 72 Year
  Sex: Female
  Weight: 90.8 kg

DRUGS (1)
  1. NEXIUM [Suspect]
     Active Substance: ESOMEPRAZOLE MAGNESIUM
     Dosage: 20/40 MGM QD PO
     Route: 048

REACTIONS (3)
  - Drug ineffective [None]
  - Chemical burn of gastrointestinal tract [None]
  - Product quality issue [None]

NARRATIVE: CASE EVENT DATE: 2016
